FAERS Safety Report 16665295 (Version 2)
Quarter: 2021Q3

REPORT INFORMATION
  Report Type: Spontaneous
  Country: US (occurrence: US)
  Receive Date: 20190803
  Receipt Date: 20210806
  Transmission Date: 20211014
  Serious: Yes (Other)
  Sender: FDA-Public Use
  Company Number: US-ACCORD-131100

PATIENT
  Age: 49 Year
  Sex: Female
  Weight: 83.01 kg

DRUGS (9)
  1. DOCETAXEL ACCORD [Suspect]
     Active Substance: DOCETAXEL
     Indication: BREAST CANCER
     Dosage: DOSE: 144 MG FOR ONE CYCLE, 130 MG FOR 4 CYCLES AND 90 MG FOR LAST CYCLE
     Dates: start: 20150303, end: 20150616
  2. PARAPLATIN [Suspect]
     Active Substance: CARBOPLATIN
     Indication: BREAST CANCER
     Dates: start: 20150303, end: 20150616
  3. LOSARTAN. [Concomitant]
     Active Substance: LOSARTAN
     Dates: start: 2007
  4. ANASTROZOLE. [Concomitant]
     Active Substance: ANASTROZOLE
     Dates: start: 2012, end: 201811
  5. KEFLEX [Concomitant]
     Active Substance: CEPHALEXIN
  6. MELOXICAM. [Concomitant]
     Active Substance: MELOXICAM
  7. ALBUTEROL. [Concomitant]
     Active Substance: ALBUTEROL
     Dates: start: 2012, end: 201811
  8. TOPROL XL [Concomitant]
     Active Substance: METOPROLOL SUCCINATE
     Dates: start: 2013
  9. GABAPENTIN. [Concomitant]
     Active Substance: GABAPENTIN
     Dates: start: 2012, end: 201811

REACTIONS (1)
  - Alopecia [Not Recovered/Not Resolved]

NARRATIVE: CASE EVENT DATE: 201503
